FAERS Safety Report 7579389-0 (Version None)
Quarter: 2011Q2

REPORT INFORMATION
  Report Type: 
  Country: None (occurrence: None)
  Receive Date: 20110629
  Receipt Date: 20110616
  Transmission Date: 20111010
  Serious: Yes (Congenital Anomaly)
  Sender: FDA-Public Use
  Company Number: DE-BIOGENIDEC-2011BI019752

PATIENT
  Age: 27 Year
  Sex: Female
  Weight: 78 kg

DRUGS (6)
  1. TYSABRI [Suspect]
     Indication: MULTIPLE SCLEROSIS
     Route: 042
     Dates: start: 20081030
  2. METHERGINE [Concomitant]
     Route: 042
     Dates: start: 20110427, end: 20110427
  3. FALITHROM [Concomitant]
     Indication: ACTIVATED PROTEIN C RESISTANCE TEST
     Dates: start: 20000101
  4. CITALOPRAM HYDROBROMIDE [Concomitant]
     Indication: DEPRESSION
     Dates: start: 20080101
  5. PROSTAGLANDIN [Concomitant]
     Route: 061
     Dates: start: 20110427, end: 20110427
  6. OXYTOCIN [Concomitant]
     Route: 042
     Dates: start: 20110427, end: 20110427

REACTIONS (2)
  - ABORTION MISSED [None]
  - PREGNANCY [None]
